FAERS Safety Report 21440464 (Version 1)
Quarter: 2022Q4

REPORT INFORMATION
  Report Type: Spontaneous
  Country: CA (occurrence: CA)
  Receive Date: 20221011
  Receipt Date: 20221011
  Transmission Date: 20230113
  Serious: Yes (Other)
  Sender: FDA-Public Use
  Company Number: CA-SAMSUNG BIOEPIS-SB-2022-25258

PATIENT
  Age: 53 Year
  Sex: Female
  Weight: 81 kg

DRUGS (2)
  1. INFLIXIMAB [Suspect]
     Active Substance: INFLIXIMAB
     Indication: Colitis ulcerative
     Route: 042
  2. MESALAMINE [Concomitant]
     Active Substance: MESALAMINE
     Indication: Product used for unknown indication
     Dosage: UNKNOWN, TABLET (DELAYED AND EXTENDED RELEASE)
     Route: 065

REACTIONS (8)
  - Abdominal distension [Unknown]
  - Condition aggravated [Unknown]
  - Dyspnoea [Unknown]
  - Erythema [Unknown]
  - Vomiting [Unknown]
  - Hypersensitivity [Unknown]
  - Infusion related reaction [Unknown]
  - Drug ineffective [Unknown]
